FAERS Safety Report 6371525-7 (Version None)
Quarter: 2009Q3

REPORT INFORMATION
  Report Type: 
  Country: None (occurrence: None)
  Receive Date: 20090923
  Receipt Date: 20080401
  Transmission Date: 20100115
  Serious: No
  Sender: FDA-Public Use
  Company Number: US-ASTRAZENECA-2007UW21482

PATIENT
  Age: 703 Month
  Sex: Male
  Weight: 109.8 kg

DRUGS (10)
  1. SEROQUEL [Suspect]
     Indication: ANXIETY
     Route: 048
     Dates: start: 20050701, end: 20070701
  2. SEROQUEL [Suspect]
     Indication: DEPRESSION
     Route: 048
     Dates: start: 20050701, end: 20070701
  3. SEROQUEL [Suspect]
     Route: 048
     Dates: start: 20060818
  4. SEROQUEL [Suspect]
     Route: 048
     Dates: start: 20060818
  5. CARDIZEM [Concomitant]
     Route: 065
     Dates: start: 20001121
  6. ENTRIC COATED ASPIRIN [Concomitant]
     Route: 065
     Dates: start: 20001121
  7. XANAX [Concomitant]
     Dosage: 0.25 MG HS, TWICE DAILY
     Route: 065
     Dates: start: 19910711
  8. LIPITOR [Concomitant]
     Route: 065
     Dates: start: 20040223
  9. ZOLOFT [Concomitant]
     Route: 065
     Dates: start: 20050302
  10. SYNTHROID [Concomitant]
     Dosage: 0.1
     Route: 065
     Dates: start: 20001121

REACTIONS (2)
  - DIABETES MELLITUS [None]
  - TYPE 2 DIABETES MELLITUS [None]
